FAERS Safety Report 18484056 (Version 2)
Quarter: 2025Q3

REPORT INFORMATION
  Report Type: Spontaneous
  Country: EU (occurrence: EU)
  Receive Date: 20201110
  Receipt Date: 20250912
  Transmission Date: 20251021
  Serious: Yes (Hospitalization, Other)
  Sender: AUROBINDO
  Company Number: EU-MYLANLABS-2020M1089369

PATIENT
  Age: 76 Year
  Sex: Female

DRUGS (2)
  1. DIAZEPAM [Suspect]
     Active Substance: DIAZEPAM
     Indication: Product used for unknown indication
     Route: 065
  2. LEVETIRACETAM [Suspect]
     Active Substance: LEVETIRACETAM
     Indication: Product used for unknown indication
     Dosage: 1 GRAM, TWO TIMES A DAY
     Route: 065

REACTIONS (2)
  - Haemorrhagic transformation stroke [Recovered/Resolved]
  - Herpes simplex encephalitis [Unknown]
